FAERS Safety Report 13163387 (Version 1)
Quarter: 2017Q1

REPORT INFORMATION
  Report Type: Spontaneous
  Country: US (occurrence: US)
  Receive Date: 20170125
  Receipt Date: 20170125
  Transmission Date: 20170428
  Serious: Yes (Other)
  Sender: FDA-Public Use
  Company Number: None

PATIENT
  Age: 41 Year
  Sex: Female
  Weight: 63 kg

DRUGS (1)
  1. BUPROPION XL [Suspect]
     Active Substance: BUPROPION
     Route: 048
     Dates: start: 20170115, end: 20170124

REACTIONS (7)
  - Headache [None]
  - Product substitution issue [None]
  - Pain [None]
  - Lethargy [None]
  - Asthenia [None]
  - Influenza like illness [None]
  - Dizziness [None]

NARRATIVE: CASE EVENT DATE: 20170125
